FAERS Safety Report 25541561 (Version 1)
Quarter: 2025Q3

REPORT INFORMATION
  Report Type: Spontaneous
  Country: EU (occurrence: EU)
  Receive Date: 20250711
  Receipt Date: 20250711
  Transmission Date: 20251020
  Serious: No
  Sender: ALKEM
  Company Number: EU-ALKEM LABORATORIES LIMITED-NL-ALKEM-2025-05895

PATIENT
  Age: 71 Year
  Sex: Male

DRUGS (8)
  1. LIDOCAINE [Suspect]
     Active Substance: LIDOCAINE
     Indication: Product used for unknown indication
     Route: 065
  2. TOPIRAMATE [Suspect]
     Active Substance: TOPIRAMATE
     Indication: Prophylaxis
     Dosage: 25 MILLIGRAM, QD (ONCE DAILY)
     Route: 048
  3. METHYLPREDNISOLONE [Suspect]
     Active Substance: METHYLPREDNISOLONE
     Indication: Product used for unknown indication
     Route: 065
  4. FROVATRIPTAN [Suspect]
     Active Substance: FROVATRIPTAN
     Indication: Prophylaxis
     Dosage: 2.5 MILLIGRAM, BID
     Route: 048
  5. METHYSERGIDE [Suspect]
     Active Substance: METHYSERGIDE
     Indication: Prophylaxis
     Dosage: 2 MILLIGRAM, TID
     Route: 048
  6. VERAPAMIL [Suspect]
     Active Substance: VERAPAMIL HYDROCHLORIDE
     Indication: Prophylaxis
     Dosage: 120 MILLIGRAM, TID
     Route: 048
  7. SUMATRIPTAN [Concomitant]
     Active Substance: SUMATRIPTAN
     Indication: Cluster headache
     Route: 058
  8. SUMATRIPTAN [Concomitant]
     Active Substance: SUMATRIPTAN
     Indication: Cluster headache
     Route: 045

REACTIONS (3)
  - Adverse drug reaction [Unknown]
  - Therapy partial responder [Unknown]
  - Drug ineffective [Unknown]
